FAERS Safety Report 4743882-6 (Version None)
Quarter: 2005Q3

REPORT INFORMATION
  Report Type: 
  Country: None (occurrence: None)
  Receive Date: 20050809
  Receipt Date: 20050728
  Transmission Date: 20060218
  Serious: Yes (Other)
  Sender: FDA-Public Use
  Company Number: 2005109129

PATIENT
  Sex: Male

DRUGS (6)
  1. COMBANTRIN (PYRANTEL) [Suspect]
     Indication: ILL-DEFINED DISORDER
     Dosage: ORAL
     Route: 048
     Dates: start: 20050718, end: 20050718
  2. LIPEX (SIMVASTATIN) (SIMVASTATIN) [Concomitant]
  3. ADALAT (NIFEDIPINE (NEFEDIPINE) [Concomitant]
  4. DIABEX (METFORMIN HYDROCHLORIDE) (METFORMIN HYDROCHLORIDE) [Concomitant]
  5. CECLOR (CEFACLOR MONOHYDRATE ) (CEFACLOR) [Concomitant]
  6. ASTRIX (ASPIRIN) (ACETYLSALICYLIC ACID) [Concomitant]

REACTIONS (10)
  - BLOOD CHOLESTEROL ABNORMAL [None]
  - BLOOD GLUCOSE ABNORMAL [None]
  - BLOOD PRESSURE ABNORMAL [None]
  - BLOOD TRIGLYCERIDES ABNORMAL [None]
  - HYPERHIDROSIS [None]
  - LIVER FUNCTION TEST ABNORMAL [None]
  - LOSS OF CONSCIOUSNESS [None]
  - SKIN NODULE [None]
  - SWELLING [None]
  - SWOLLEN TONGUE [None]
